FAERS Safety Report 6506461-6 (Version None)
Quarter: 2009Q4

REPORT INFORMATION
  Report Type: 
  Country: None (occurrence: None)
  Receive Date: 20091221
  Receipt Date: 20091209
  Transmission Date: 20100525
  Serious: Yes (Hospitalization)
  Sender: FDA-Public Use
  Company Number: US-BIOGENIDEC-2009BI040511

PATIENT
  Age: 19 Year
  Sex: Male

DRUGS (1)
  1. TYSABRI [Suspect]
     Indication: MULTIPLE SCLEROSIS
     Route: 042
     Dates: start: 20081217, end: 20090901

REACTIONS (4)
  - HAEMOPTYSIS [None]
  - OESOPHAGEAL RUPTURE [None]
  - OXYGEN SATURATION DECREASED [None]
  - SNORING [None]
